FAERS Safety Report 13286389 (Version 3)
Quarter: 2017Q1

REPORT INFORMATION
  Report Type: Spontaneous
  Country: US (occurrence: IL)
  Receive Date: 20170302
  Receipt Date: 20170306
  Transmission Date: 20170428
  Serious: Yes (Hospitalization)
  Sender: FDA-Public Use
  Company Number: US-JNJFOC-20170222402

PATIENT
  Age: 60 Year
  Sex: Female
  Weight: 79.2 kg

DRUGS (2)
  1. XARELTO [Suspect]
     Active Substance: RIVAROXABAN
     Indication: DEEP VEIN THROMBOSIS
     Route: 048
     Dates: end: 20160928
  2. TRAMETINIB [Concomitant]
     Active Substance: TRAMETINIB
     Indication: PRODUCT USED FOR UNKNOWN INDICATION
     Route: 048
     Dates: start: 20160830

REACTIONS (8)
  - Nausea [Unknown]
  - Fatigue [Not Recovered/Not Resolved]
  - Localised oedema [Unknown]
  - Urinary incontinence [Unknown]
  - Vaginal haemorrhage [Recovered/Resolved]
  - International normalised ratio increased [Unknown]
  - Confusional state [Not Recovered/Not Resolved]
  - Vomiting [Unknown]

NARRATIVE: CASE EVENT DATE: 20160928
